FAERS Safety Report 8535272-5 (Version None)
Quarter: 2012Q3

REPORT INFORMATION
  Report Type: 
  Country: None (occurrence: None)
  Receive Date: 20120725
  Receipt Date: 20120713
  Transmission Date: 20120928
  Serious: Yes (Death)
  Sender: FDA-Public Use
  Company Number: DE-TEVA-348480GER

PATIENT
  Age: 72 Year
  Sex: Female
  Weight: 63 kg

DRUGS (13)
  1. METOPROLOL-RATIOPHARM O.K. 100MG RETARDTABLETTEN [Concomitant]
     Dosage: 100 MILLIGRAM; 1/2 - 0 - 1/2
     Route: 048
  2. MCP-TROPFEN [Concomitant]
     Dosage: 100 GTT;
     Route: 048
     Dates: start: 20120222
  3. BETAGALEN CREME [Concomitant]
     Dosage: TWICE DAILY
     Route: 061
     Dates: start: 20120215
  4. SIMVASTATIN [Concomitant]
     Indication: HYPERLIPIDAEMIA
     Dosage: 40 MILLIGRAM;
     Route: 048
  5. AMOXICILLIN [Concomitant]
     Dosage: 2 DOSAGE FORMS; 1-0-1
     Route: 048
     Dates: start: 20120217
  6. LACTULOSE-RATIOPHARM SIRUP [Concomitant]
     Route: 048
  7. HERZASS-RATIOPHARM 100 [Concomitant]
     Dosage: 100 MILLIGRAM;
     Route: 048
  8. TORSEMIDE [Concomitant]
     Dosage: 20 MILLIGRAM;
     Route: 048
  9. METFORMIN HYDROCHLORIDE [Suspect]
     Indication: DIABETES MELLITUS
     Dosage: 2000 MILLIGRAM;
     Route: 048
     Dates: end: 20120222
  10. JANUVIA [Concomitant]
     Dosage: 100 MILLIGRAM;
     Route: 048
  11. BETA-ACETYLDIGOXIN 0,2 [Concomitant]
     Dosage: .5 DOSAGE FORMS; 1/2 -0-0
     Route: 048
  12. RAMIPRIL AL [Concomitant]
     Indication: HYPERTENSION
     Dosage: 5 MILLIGRAM;
     Route: 048
  13. CIPROFLOXACIN [Concomitant]
     Dosage: 1000 MILLIGRAM;
     Route: 048
     Dates: start: 20120215

REACTIONS (3)
  - LACTIC ACIDOSIS [None]
  - GASTROENTERITIS [None]
  - RENAL FAILURE ACUTE [None]
